FAERS Safety Report 15992238 (Version 1)
Quarter: 2019Q1

REPORT INFORMATION
  Report Type: Spontaneous
  Country: US (occurrence: US)
  Receive Date: 20190221
  Receipt Date: 20190221
  Transmission Date: 20190418
  Serious: Yes (Hospitalization)
  Sender: FDA-Public Use
  Company Number: US-ELI_LILLY_AND_COMPANY-US201902008931

PATIENT
  Sex: Male

DRUGS (2)
  1. HUMULIN N [Suspect]
     Active Substance: INSULIN HUMAN
     Dosage: 10 U, EACH EVENING (AT NIGHT BEFORE BEDTIME)
     Route: 058
     Dates: start: 201902
  2. HUMULIN N [Suspect]
     Active Substance: INSULIN HUMAN
     Indication: DIABETES MELLITUS
     Dosage: 10 U, EACH EVENING (AT NIGHT BEFORE BEDTIME)
     Route: 058
     Dates: end: 20190207

REACTIONS (4)
  - Dizziness [Unknown]
  - Disorientation [Unknown]
  - Blood glucose decreased [Unknown]
  - Confusional state [Unknown]
